FAERS Safety Report 8926028 (Version 1)
Quarter: 2012Q4

REPORT INFORMATION
  Report Type: 
  Country: TH (occurrence: TH)
  Receive Date: 20121126
  Receipt Date: 20121126
  Transmission Date: 20130627
  Serious: Yes (Death, Hospitalization)
  Sender: FDA-Public Use
  Company Number: TH-BAXTER-2012BAX024607

PATIENT
  Age: 51 Year
  Sex: Male

DRUGS (1)
  1. DIANEAL [Suspect]
     Indication: AUTOMATED PERITONEAL DIALYSIS
     Route: 033
     Dates: end: 20121115

REACTIONS (2)
  - Cerebral haemorrhage [Fatal]
  - Fall [Unknown]
